FAERS Safety Report 4875856-9 (Version None)
Quarter: 2006Q1

REPORT INFORMATION
  Report Type: 
  Country: None (occurrence: None)
  Receive Date: 20060109
  Receipt Date: 20050104
  Transmission Date: 20060701
  Serious: Yes (Hospitalization)
  Sender: FDA-Public Use
  Company Number: US-MERCK-0501USA00173

PATIENT
  Age: 53 Year
  Sex: Male
  Weight: 95 kg

DRUGS (5)
  1. VIOXX [Suspect]
     Route: 048
     Dates: start: 19991109, end: 20010830
  2. PREDNISONE [Concomitant]
     Route: 065
  3. ASPIRIN [Concomitant]
     Route: 065
  4. NICOTINE [Concomitant]
     Route: 065
  5. PROCARDIA [Concomitant]
     Route: 048

REACTIONS (8)
  - CEREBROVASCULAR ACCIDENT [None]
  - CONSTIPATION [None]
  - HAEMORRHOIDS [None]
  - MUSCULOSKELETAL PAIN [None]
  - PAIN [None]
  - RECTAL HAEMORRHAGE [None]
  - RENAL FAILURE [None]
  - SKIN FISSURES [None]
